FAERS Safety Report 6056068-2 (Version None)
Quarter: 2009Q1

REPORT INFORMATION
  Report Type: 
  Country: None (occurrence: None)
  Receive Date: 20090128
  Receipt Date: 20090120
  Transmission Date: 20090719
  Serious: Yes (Hospitalization)
  Sender: FDA-Public Use
  Company Number: IN-WATSON-2009-00311

PATIENT
  Age: 23 Year
  Sex: Female

DRUGS (6)
  1. DIAZEPAM [Suspect]
     Indication: CONVULSION
     Dosage: UNK
     Route: 042
  2. DICLOFENAC (WATSON LABORATORIES) [Suspect]
     Indication: ABDOMINAL PAIN
     Dosage: UNK
     Route: 030
  3. METOCLOPRAMIDE INJECTION [Suspect]
     Indication: VOMITING
     Dosage: UNK
     Route: 042
  4. PHENYTOIN [Suspect]
     Indication: CONVULSION
  5. PANTOPRAZOLE SODIUM [Suspect]
     Indication: ABDOMINAL PAIN
     Dosage: 40 MG, DAILY
     Route: 042
  6. DROTAVERINE [Suspect]
     Indication: ABDOMINAL PAIN
     Dosage: 40 MG, TID
     Route: 030

REACTIONS (1)
  - PORPHYRIA ACUTE [None]
